FAERS Safety Report 25976853 (Version 1)
Quarter: 2025Q4

REPORT INFORMATION
  Report Type: Spontaneous
  Country: US (occurrence: US)
  Receive Date: 20251029
  Receipt Date: 20251029
  Transmission Date: 20260117
  Serious: No
  Sender: ETON PHARMACEUTICALS, INC
  Company Number: US-IPSEN Group, Research and Development-2025-05285

PATIENT

DRUGS (1)
  1. INCRELEX [Suspect]
     Active Substance: MECASERMIN
     Indication: Primary insulin like growth factor-1 deficiency
     Dosage: 0.44 MILLILITER, QD
     Route: 058
     Dates: start: 20250117

REACTIONS (2)
  - Viral infection [Unknown]
  - Product dose omission issue [Unknown]

NARRATIVE: CASE EVENT DATE: 20250118
